FAERS Safety Report 9818478 (Version 1)
Quarter: 2013Q4

REPORT INFORMATION
  Report Type: Spontaneous
  Country: US (occurrence: None)
  Receive Date: 20131223
  Receipt Date: 20131223
  Transmission Date: 20140711
  Serious: Yes (Other)
  Sender: FDA-Public Use
  Company Number: 219352

PATIENT
  Age: 54 Year
  Sex: 0

DRUGS (1)
  1. PICATO GEL [Suspect]
     Dosage: 1 IN 1 D TOPICAL
     Dates: start: 20120912, end: 20120914

REACTIONS (4)
  - Application site pustules [None]
  - Rash pustular [None]
  - Drug administered at inappropriate site [None]
  - Skin exfoliation [None]
